FAERS Safety Report 24717393 (Version 1)
Quarter: 2024Q4

REPORT INFORMATION
  Report Type: Spontaneous
  Country: US (occurrence: None)
  Receive Date: 20241209
  Receipt Date: 20241209
  Transmission Date: 20250115
  Serious: No
  Sender: Public
  Company Number: None

PATIENT
  Age: 36 Year
  Sex: Female
  Weight: 72 kg

DRUGS (2)
  1. TIRZEPATIDE [Suspect]
     Active Substance: TIRZEPATIDE
  2. TIRZEPATIDE [Concomitant]
     Active Substance: TIRZEPATIDE
     Dates: start: 20241113

REACTIONS (4)
  - Fatigue [None]
  - Impaired work ability [None]
  - Disturbance in attention [None]
  - Laziness [None]

NARRATIVE: CASE EVENT DATE: 20241115
